FAERS Safety Report 8367167-4 (Version None)
Quarter: 2012Q1

REPORT INFORMATION
  Report Type: 
  Country: None (occurrence: None)
  Receive Date: 20120323
  Receipt Date: 20110727
  Transmission Date: 20120608
  Serious: Yes (Hospitalization)
  Sender: FDA-Public Use
  Company Number: 163-21880-11073401

PATIENT
  Age: 75 Year
  Sex: Male

DRUGS (2)
  1. REVLIMID [Suspect]
     Indication: MULTIPLE MYELOMA
     Dosage: 15 MG, 1 IN 1 D, PO; 25 MG, DAILY FOR 21 DAYS OF 28 , PO
     Route: 048
     Dates: start: 20080601
  2. REVLIMID [Suspect]
     Indication: MULTIPLE MYELOMA
     Dosage: 15 MG, 1 IN 1 D, PO; 25 MG, DAILY FOR 21 DAYS OF 28 , PO
     Route: 048
     Dates: start: 20110501

REACTIONS (1)
  - OSTEOLYSIS [None]
